FAERS Safety Report 8427442-1 (Version None)
Quarter: 2012Q2

REPORT INFORMATION
  Report Type: 
  Country: None (occurrence: None)
  Receive Date: 20120323
  Receipt Date: 20110211
  Transmission Date: 20120825
  Serious: Yes (Other)
  Sender: FDA-Public Use
  Company Number: 163-21880-11021688

PATIENT
  Age: 73 Year
  Sex: Male
  Weight: 88.4514 kg

DRUGS (6)
  1. PRILOSEC [Concomitant]
  2. DILTIAZEM [Concomitant]
  3. REVLIMID [Suspect]
     Indication: MULTIPLE MYELOMA
     Dosage: 10 MG, QD, PO
     Route: 048
     Dates: start: 20100208
  4. SIMVASTATIN [Concomitant]
  5. QUINAPRIL HCL [Concomitant]
  6. WARFARIN SODIUM [Concomitant]

REACTIONS (2)
  - NEUTROPENIA [None]
  - THROMBOCYTOPENIA [None]
